FAERS Safety Report 7457741-1 (Version None)
Quarter: 2011Q2

REPORT INFORMATION
  Report Type: 
  Country: None (occurrence: None)
  Receive Date: 20110502
  Receipt Date: 20110502
  Transmission Date: 20111010
  Serious: Yes (Death, Life-Threatening, Hospitalization)
  Sender: FDA-Public Use
  Company Number: None

PATIENT
  Sex: Male
  Weight: 82.7 kg

DRUGS (3)
  1. ALBUTEROL [Concomitant]
  2. ANTIBIOTICS [Concomitant]
  3. GEODON [Suspect]
     Indication: AGITATION
     Dosage: 3/28/2011 @ 9:00-04/02/2011
     Dates: start: 20110328, end: 20110402

REACTIONS (2)
  - HEART RATE INCREASED [None]
  - PNEUMONIA ASPIRATION [None]
